FAERS Safety Report 8023829-X (Version None)
Quarter: 2012Q1

REPORT INFORMATION
  Report Type: 
  Country: None (occurrence: None)
  Receive Date: 20120105
  Receipt Date: 20111223
  Transmission Date: 20120608
  Serious: Yes (Other)
  Sender: FDA-Public Use
  Company Number: FR-SANOFI-AVENTIS-2011SA084353

PATIENT
  Age: 77 Year
  Sex: Male

DRUGS (7)
  1. RAMIPRIL [Concomitant]
     Route: 048
     Dates: start: 20050101
  2. LANTUS [Suspect]
     Indication: TYPE 2 DIABETES MELLITUS
     Route: 058
     Dates: start: 20101101, end: 20111027
  3. PENTOXIFYLLINE [Concomitant]
     Route: 048
     Dates: start: 20050101
  4. LEVOTHYROXINE SODIUM [Concomitant]
     Indication: HYPOTHYROIDISM
     Route: 048
  5. AMIODARONE HCL [Concomitant]
     Indication: ATRIAL FIBRILLATION
     Route: 048
     Dates: start: 20050101
  6. CRESTOR [Concomitant]
     Route: 048
  7. ACEBUTOLOL [Concomitant]
     Dates: start: 20050101

REACTIONS (1)
  - PROSTATE CANCER [None]
